FAERS Safety Report 6793700-X (Version None)
Quarter: 2010Q2

REPORT INFORMATION
  Report Type: 
  Country: None (occurrence: None)
  Receive Date: 20100624
  Receipt Date: 20090320
  Transmission Date: 20101027
  Serious: No
  Sender: FDA-Public Use
  Company Number: US-PFIZER INC-2008159314

PATIENT
  Sex: Female
  Weight: 56.7 kg

DRUGS (5)
  1. RELPAX [Suspect]
     Indication: MIGRAINE
     Dosage: 80 MG, 2X/DAY
  2. ZOLOFT [Concomitant]
     Dosage: UNK
  3. VITAMINS [Concomitant]
     Dosage: UNK
  4. FIORICET [Concomitant]
     Dosage: UNK
  5. BUTALBITAL W/ ASPIRIN + CAFFEINE [Concomitant]
     Dosage: UNK

REACTIONS (1)
  - MIGRAINE [None]
